FAERS Safety Report 6659800-X (Version None)
Quarter: 2010Q1

REPORT INFORMATION
  Report Type: 
  Country: None (occurrence: None)
  Receive Date: 20100326
  Receipt Date: 20100315
  Transmission Date: 20100710
  Serious: Yes (Hospitalization)
  Sender: FDA-Public Use
  Company Number: 006389

PATIENT
  Sex: Female

DRUGS (7)
  1. CERTOLIZUMAB PEGOL (CERTOLIZUMAB PEGOL) [Suspect]
     Indication: RHEUMATOID ARTHRITIS
     Dosage: 200 MG, EVERY TWO WEEKS SUBCUTANEOUS
     Route: 058
     Dates: start: 20090428
  2. RHEUMATREX [Suspect]
     Indication: RHEUMATOID ARTHRITIS
     Dosage: 8 MG, 1X/WEEK ORAL
     Route: 048
     Dates: start: 20041214
  3. CELECOXIB (CELECOX) [Suspect]
     Indication: RHEUMATOID ARTHRITIS
     Dosage: 400 MG QD ORAL
     Route: 048
     Dates: start: 20080527
  4. FOLIC ACID [Concomitant]
  5. PREDNISOLONE [Concomitant]
  6. RIBOFLAVIN TETRABUTYRATE [Concomitant]
  7. REBAMIPIDE [Concomitant]

REACTIONS (4)
  - BRONCHITIS [None]
  - DIARRHOEA [None]
  - DRUG INEFFECTIVE [None]
  - H1N1 INFLUENZA [None]
